FAERS Safety Report 21983604 (Version 3)
Quarter: 2023Q1

REPORT INFORMATION
  Report Type: Spontaneous
  Country: DE (occurrence: None)
  Receive Date: 20230213
  Receipt Date: 20230317
  Transmission Date: 20230417
  Serious: Yes (Life-Threatening, Hospitalization)
  Sender: FDA-Public Use
  Company Number: DE-ROCHE-3282140

PATIENT
  Sex: Female

DRUGS (11)
  1. MABTHERA [Suspect]
     Active Substance: RITUXIMAB
     Indication: Dermatomyositis
     Dosage: 2 X 500 MG
     Route: 042
     Dates: start: 201308
  2. MABTHERA [Suspect]
     Active Substance: RITUXIMAB
     Dosage: 2 X 500 MG
     Route: 042
  3. MABTHERA [Suspect]
     Active Substance: RITUXIMAB
     Dosage: 1 X 500 MG
     Route: 042
     Dates: start: 2016, end: 2019
  4. MABTHERA [Suspect]
     Active Substance: RITUXIMAB
     Dosage: 2 X 1000 MG AT INTERVALS OF 2 TO 3 WEEKS EACH
     Route: 042
     Dates: start: 2013
  5. PREDNISONE [Concomitant]
     Active Substance: PREDNISONE
  6. PREDNISONE [Concomitant]
     Active Substance: PREDNISONE
  7. PREDNISONE [Concomitant]
     Active Substance: PREDNISONE
  8. PREDNISONE [Concomitant]
     Active Substance: PREDNISONE
  9. ACETAMINOPHEN [Concomitant]
     Active Substance: ACETAMINOPHEN
     Indication: Premedication
  10. ACETAMINOPHEN [Concomitant]
     Active Substance: ACETAMINOPHEN
  11. VERAPAMIL [Concomitant]
     Active Substance: VERAPAMIL HYDROCHLORIDE

REACTIONS (6)
  - Pulmonary embolism [Not Recovered/Not Resolved]
  - Off label use [Unknown]
  - General physical health deterioration [Recovering/Resolving]
  - Synovial cyst [Unknown]
  - Injection site reaction [Unknown]
  - Pain [Not Recovered/Not Resolved]
